FAERS Safety Report 5427089-5 (Version None)
Quarter: 2007Q3

REPORT INFORMATION
  Report Type: 
  Country: None (occurrence: None)
  Receive Date: 20070824
  Receipt Date: 20070824
  Transmission Date: 20080115
  Serious: Yes (Hospitalization)
  Sender: FDA-Public Use
  Company Number: None

PATIENT
  Age: 58 Year
  Sex: Female
  Weight: 143.7903 kg

DRUGS (10)
  1. BACTRIM [Suspect]
     Indication: BACTERAEMIA
     Dosage: 240MG PO TID
     Route: 048
     Dates: start: 20070323, end: 20070331
  2. ENALAPRIL [Suspect]
     Indication: HYPERTENSION
     Dosage: 20MG PO QD  (DURATION: LONG TIME)
     Route: 048
  3. CIPRO [Concomitant]
  4. COMPAZINE [Concomitant]
  5. SINGULAIR [Concomitant]
  6. HYDROCHLOROTHIAZIDE [Concomitant]
  7. LIPITOR [Concomitant]
  8. NAPROXEN [Concomitant]
  9. CALCIUM CARB [Concomitant]
  10. ASPIRIN [Concomitant]

REACTIONS (8)
  - BLOOD CREATINE INCREASED [None]
  - BLOOD POTASSIUM INCREASED [None]
  - CHILLS [None]
  - DIZZINESS [None]
  - MALAISE [None]
  - NAUSEA [None]
  - PYREXIA [None]
  - VOMITING [None]
